FAERS Safety Report 6140741-1 (Version None)
Quarter: 2009Q2

REPORT INFORMATION
  Report Type: 
  Country: None (occurrence: None)
  Receive Date: 20090402
  Receipt Date: 20090323
  Transmission Date: 20091009
  Serious: Yes (Hospitalization)
  Sender: FDA-Public Use
  Company Number: PHHY2009FR10979

PATIENT
  Sex: Male

DRUGS (10)
  1. TAREG [Suspect]
     Indication: HYPERTENSION
     Dosage: 80 MG DAILY
     Dates: end: 20090127
  2. ALDACTONE [Suspect]
     Indication: HYPERTENSION
     Dosage: 50 MG DAILY
     Dates: end: 20090127
  3. LASIX [Suspect]
     Indication: HYPERTENSION
     Dosage: 40 MG DAILY
     Dates: end: 20090127
  4. VOLTAREN [Suspect]
     Indication: ARTHRALGIA
     Dosage: 3 INJECTIONS (TOTAL)
     Route: 030
     Dates: start: 20090101, end: 20090101
  5. PROFENID [Suspect]
     Indication: ARTHRALGIA
     Dosage: AS NEEDED
     Dates: start: 20081201, end: 20090101
  6. NITROGLYCERIN [Concomitant]
     Indication: ANXIETY
     Dosage: 5 MG DAILY
  7. FLECAINE [Concomitant]
     Indication: CARDIAC DISORDER
     Dosage: 100 MG
  8. SPIRIVA [Concomitant]
     Indication: BRONCHOPNEUMOPATHY
     Dosage: 1 DF, QD
  9. AMBROXOL [Concomitant]
     Indication: BRONCHOPNEUMOPATHY
     Dosage: 1 DF, TID
  10. XANAX [Concomitant]
     Indication: ANXIETY
     Dosage: 0.25 MG, QD

REACTIONS (5)
  - DEHYDRATION [None]
  - DRUG INTERACTION [None]
  - HIP SURGERY [None]
  - HYPERKALAEMIA [None]
  - RENAL FAILURE ACUTE [None]
